FAERS Safety Report 21010858 (Version 1)
Quarter: 2022Q2

REPORT INFORMATION
  Report Type: Spontaneous
  Country: US (occurrence: US)
  Receive Date: 20220627
  Receipt Date: 20220627
  Transmission Date: 20220721
  Serious: No
  Sender: FDA-Public Use
  Company Number: US-AMGEN-USASP2022105007

PATIENT
  Sex: Male

DRUGS (4)
  1. REPATHA [Suspect]
     Active Substance: EVOLOCUMAB
     Indication: Product used for unknown indication
     Dosage: UNK
     Route: 065
  2. DIAZEPAM [Concomitant]
     Active Substance: DIAZEPAM
     Dosage: 20 MILLIGRAM
  3. GABAPENTIN [Concomitant]
     Active Substance: GABAPENTIN
     Dosage: 600 MILLIGRAM
  4. BACLOFEN [Concomitant]
     Active Substance: BACLOFEN

REACTIONS (2)
  - Muscle spasticity [Unknown]
  - Muscle spasms [Unknown]
